FAERS Safety Report 19647226 (Version 1)
Quarter: 2021Q3

REPORT INFORMATION
  Report Type: Report from Study
  Country: US (occurrence: US)
  Receive Date: 20210802
  Receipt Date: 20210802
  Transmission Date: 20211014
  Serious: Yes (Life-Threatening, Hospitalization, Other)
  Sender: FDA-Public Use
  Company Number: PHHY2018US106781

PATIENT
  Sex: Female

DRUGS (4)
  1. KYMRIAH [Suspect]
     Active Substance: TISAGENLECLEUCEL
     Indication: ACUTE LYMPHOCYTIC LEUKAEMIA
     Dosage: UNK, ONCE/SINGLE
     Route: 042
     Dates: start: 20180827
  2. MUPIROCIN. [Concomitant]
     Active Substance: MUPIROCIN
     Indication: PRODUCT USED FOR UNKNOWN INDICATION
     Dosage: 1 APPLICATION, BID
     Route: 061
  3. POSACONAZOLE [Concomitant]
     Active Substance: POSACONAZOLE
     Indication: CONSTIPATION
     Dosage: 2 DF, QD
     Route: 048
  4. KEPPRA [Concomitant]
     Active Substance: LEVETIRACETAM
     Indication: SEIZURE PROPHYLAXIS
     Dosage: 1 DF, BID
     Route: 065

REACTIONS (24)
  - Dermatitis exfoliative generalised [Unknown]
  - Depressed level of consciousness [Unknown]
  - Fluid overload [Recovered/Resolved]
  - Back pain [Unknown]
  - Encephalopathy [Unknown]
  - Respiratory distress [Unknown]
  - Neurotoxicity [Unknown]
  - Cardiac failure [Unknown]
  - Oedema [Recovered/Resolved]
  - Skin disorder [Recovering/Resolving]
  - Pyrexia [Unknown]
  - Neck pain [Unknown]
  - Neuralgia [Unknown]
  - Dyspnoea [Unknown]
  - Skin ulcer [Unknown]
  - Oedema mucosal [Unknown]
  - Thrombotic microangiopathy [Unknown]
  - Cytokine release syndrome [Recovered/Resolved]
  - Hypotension [Unknown]
  - Hypophagia [Recovered/Resolved]
  - Grunting [Unknown]
  - Pulmonary oedema [Unknown]
  - Hepatic function abnormal [Recovered/Resolved]
  - Muscle spasms [Unknown]

NARRATIVE: CASE EVENT DATE: 20180903
